FAERS Safety Report 11456533 (Version 2)
Quarter: 2015Q3

REPORT INFORMATION
  Report Type: Report from Study
  Country: DE (occurrence: DE)
  Receive Date: 20150903
  Receipt Date: 20150914
  Transmission Date: 20151125
  Serious: Yes (Death)
  Sender: FDA-Public Use
  Company Number: DE-ABBVIE-15P-062-1455054-00

PATIENT
  Age: 78 Year
  Sex: Male
  Weight: 64.7 kg

DRUGS (1)
  1. DUODOPA [Suspect]
     Active Substance: CARBIDOPA\LEVODOPA
     Indication: PARKINSON^S DISEASE
     Dosage: 8.5ML IN THE MORNING; 2.8ML CONTINOUSLY FROM 7AM TO 10PM
     Route: 050
     Dates: start: 20120424

REACTIONS (1)
  - Death [Fatal]

NARRATIVE: CASE EVENT DATE: 20150820
